FAERS Safety Report 4821653-X (Version None)
Quarter: 2005Q4

REPORT INFORMATION
  Report Type: 
  Country: None (occurrence: None)
  Receive Date: 20051107
  Receipt Date: 20051024
  Transmission Date: 20060501
  Serious: Yes (Hospitalization)
  Sender: FDA-Public Use
  Company Number: 2005AC01682

PATIENT
  Age: 30 Year
  Sex: Female

DRUGS (6)
  1. QUETIAPINE [Suspect]
     Indication: SCHIZOAFFECTIVE DISORDER
     Dosage: DOSE BEFORE OVERDOSE. TITRATED UP T0 300 MG TWICE DAILY OVER ONE WEEK.
     Route: 048
  2. QUETIAPINE [Suspect]
     Route: 048
  3. QUETIAPINE [Suspect]
     Dosage: TAKEN AS OVERDOSE
     Route: 048
  4. QUETIAPINE [Suspect]
     Dosage: RE-STARTED ONE WEEK AFTER OVERDOSE. TITRATED UP T0 300 MG TWICE DAILY OVER ONE WEEK.
  5. ALCOHOL [Suspect]
     Dosage: PATIENT TOOK APPROX 4 CL OF GIN
  6. LORAZEPAM [Concomitant]
     Indication: SCHIZOAFFECTIVE DISORDER

REACTIONS (7)
  - ALCOHOL USE [None]
  - ELECTROCARDIOGRAM QT CORRECTED INTERVAL PROLONGED [None]
  - OVERDOSE [None]
  - SEDATION [None]
  - SINUS TACHYCARDIA [None]
  - SOMNOLENCE [None]
  - SUICIDE ATTEMPT [None]
